FAERS Safety Report 5472555-X (Version None)
Quarter: 2007Q3

REPORT INFORMATION
  Report Type: 
  Country: None (occurrence: None)
  Receive Date: 20070927
  Receipt Date: 20070912
  Transmission Date: 20080115
  Serious: Yes (Death, Other)
  Sender: FDA-Public Use
  Company Number: 2007RR-09421

PATIENT
  Age: 53 Year
  Sex: Male

DRUGS (10)
  1. METRONIDAZOLE [Suspect]
     Indication: ANALGESIA
  2. AUGMENTIN '125' [Suspect]
     Indication: INFECTION
  3. LEVOFLOXACIN [Suspect]
     Indication: INFECTION
  4. GENTAMICIN [Suspect]
     Indication: INFECTION
  5. ACETAMINOPHEN [Suspect]
     Indication: ANALGESIA
  6. ACETAMINOPHEN [Suspect]
     Indication: INFECTION
  7. VANCOMYCIN [Suspect]
     Indication: INFECTION
  8. DICLOFENAC SODIUM (DICLOFENAC) [Concomitant]
  9. METOCLOPRAMIDE (METOCLOPRAMIDE) [Concomitant]
  10. OMEPRAZOLE [Concomitant]

REACTIONS (4)
  - DISORIENTATION [None]
  - GENERAL PHYSICAL HEALTH DETERIORATION [None]
  - METABOLIC ACIDOSIS [None]
  - MYOCARDIAL INFARCTION [None]
